FAERS Safety Report 5247241-1 (Version None)
Quarter: 2007Q1

REPORT INFORMATION
  Report Type: 
  Country: None (occurrence: None)
  Receive Date: 20070227
  Receipt Date: 20070202
  Transmission Date: 20070707
  Serious: Yes (Other)
  Sender: FDA-Public Use
  Company Number: PHHO2007SG00574

PATIENT
  Age: 53 Year
  Sex: Female
  Weight: 46 kg

DRUGS (6)
  1. ZOMETA [Suspect]
     Indication: MULTIPLE MYELOMA
     Dosage: 4MG EVERY 3 WEEKS
     Route: 042
     Dates: start: 20061206, end: 20061228
  2. DEXAMETHASONE [Concomitant]
     Dosage: 20MG OM X 4 DAYS WEEKLY
     Dates: start: 20061206
  3. THALIDOMIDE [Concomitant]
     Dosage: 50MG ON
     Route: 048
     Dates: start: 20061129
  4. PHENOBARBITONE [Concomitant]
     Indication: EPILEPSY
  5. VALPROATE SODIUM [Concomitant]
  6. CARBAMAZEPINE [Concomitant]

REACTIONS (2)
  - SEQUESTRECTOMY [None]
  - TERTIARY SEQUESTRUM [None]
